FAERS Safety Report 8119853-9 (Version None)
Quarter: 2012Q1

REPORT INFORMATION
  Report Type: 
  Country: None (occurrence: None)
  Receive Date: 20120207
  Receipt Date: 20120127
  Transmission Date: 20120608
  Serious: Yes (Hospitalization, Congenital Anomaly)
  Sender: FDA-Public Use
  Company Number: US-MYLANLABS-2012S1002201

PATIENT
  Sex: Female

DRUGS (1)
  1. SERTRALINE HYDROCHLORIDE [Suspect]
     Route: 064
     Dates: start: 20080101, end: 20080101

REACTIONS (7)
  - PATENT DUCTUS ARTERIOSUS [None]
  - LUNG DISORDER [None]
  - PREMATURE BABY [None]
  - HAEMORRHAGE INTRACRANIAL [None]
  - DEAFNESS [None]
  - MATERNAL EXPOSURE DURING PREGNANCY [None]
  - DEVELOPMENTAL DELAY [None]
